FAERS Safety Report 14552743 (Version 1)
Quarter: 2018Q1

REPORT INFORMATION
  Report Type: Spontaneous
  Country: US (occurrence: US)
  Receive Date: 20180220
  Receipt Date: 20180220
  Transmission Date: 20180509
  Serious: No
  Sender: FDA-Public Use
  Company Number: US-IPSEN BIOPHARMACEUTICALS, INC.-2017-12934

PATIENT
  Sex: Female

DRUGS (1)
  1. DYSPORT [Suspect]
     Active Substance: ABOBOTULINUMTOXINA
     Indication: SKIN COSMETIC PROCEDURE
     Dosage: 100 IU
     Route: 065
     Dates: start: 20170721, end: 20170721

REACTIONS (8)
  - Nasopharyngitis [Unknown]
  - Generalised oedema [Unknown]
  - Rash generalised [Unknown]
  - Product preparation error [Unknown]
  - Skin haemorrhage [Unknown]
  - Irritability [Unknown]
  - Contusion [Unknown]
  - Pruritus [Recovered/Resolved]

NARRATIVE: CASE EVENT DATE: 2017
